FAERS Safety Report 4318942-4 (Version None)
Quarter: 2004Q1

REPORT INFORMATION
  Report Type: 
  Country: None (occurrence: None)
  Receive Date: 20040316
  Receipt Date: 20040309
  Transmission Date: 20041129
  Serious: Yes (Other)
  Sender: FDA-Public Use
  Company Number: HQWYE667909MAR04

PATIENT
  Sex: Female

DRUGS (1)
  1. SUPRAX [Suspect]
     Indication: PHARYNGITIS
     Dosage: 400 MG DAILY
     Route: 048
     Dates: start: 20040217, end: 20040221

REACTIONS (13)
  - CHEST DISCOMFORT [None]
  - DECREASED APPETITE [None]
  - DIARRHOEA [None]
  - ERYTHEMA [None]
  - FAECES DISCOLOURED [None]
  - HYPERSENSITIVITY [None]
  - HYPOAESTHESIA [None]
  - LOOSE STOOLS [None]
  - PALMAR ERYTHEMA [None]
  - PRURITUS [None]
  - RASH [None]
  - SWELLING FACE [None]
  - THROAT TIGHTNESS [None]
